FAERS Safety Report 9572367 (Version 1)
Quarter: 2013Q3

REPORT INFORMATION
  Report Type: Spontaneous
  Country: US (occurrence: None)
  Receive Date: 20130930
  Receipt Date: 20130930
  Transmission Date: 20140515
  Serious: Yes (Other)
  Sender: FDA-Public Use
  Company Number: None

PATIENT
  Sex: Female
  Weight: 52.16 kg

DRUGS (3)
  1. DEPAKOTO [Suspect]
     Dates: start: 20130420, end: 20130514
  2. DEPAKOTO [Suspect]
     Dates: start: 20130420, end: 20130514
  3. GEODON [Suspect]
     Dates: start: 20130502, end: 20130514

REACTIONS (3)
  - Tremor [None]
  - Vision blurred [None]
  - Muscle spasms [None]
